FAERS Safety Report 5950948-1 (Version None)
Quarter: 2008Q4

REPORT INFORMATION
  Report Type: 
  Country: None (occurrence: None)
  Receive Date: 20081112
  Receipt Date: 20081031
  Transmission Date: 20090506
  Serious: Yes (Life-Threatening)
  Sender: FDA-Public Use
  Company Number: FR-PFIZER INC-2008092908

PATIENT
  Sex: Male

DRUGS (4)
  1. TRIFLUCAN [Suspect]
     Dates: start: 20080129, end: 20080207
  2. VANCOMYCIN [Suspect]
     Dates: start: 20080127, end: 20080131
  3. RIFATER [Suspect]
     Dates: start: 20080131, end: 20080207
  4. MYAMBUTOL [Suspect]
     Dates: start: 20080131, end: 20080207

REACTIONS (1)
  - LINEAR IGA DISEASE [None]
